FAERS Safety Report 18581017 (Version 1)
Quarter: 2020Q4

REPORT INFORMATION
  Report Type: Spontaneous
  Country: ES (occurrence: ES)
  Receive Date: 20201204
  Receipt Date: 20201204
  Transmission Date: 20210114
  Serious: Yes (Hospitalization, Other)
  Sender: FDA-Public Use
  Company Number: ES-MYLANLABS-2020M1098494

PATIENT
  Age: 80 Year
  Sex: Male
  Weight: 78 kg

DRUGS (2)
  1. ENALAPRIL/HYDROCHLOROTHIAZIDE [Suspect]
     Active Substance: ENALAPRIL MALEATE\HYDROCHLOROTHIAZIDE
     Indication: HYPERTENSION
     Dosage: 1 DOSAGE FORM, QD (1 TABLET PER DAY)
     Route: 048
     Dates: start: 20200624
  2. LENVATINIB MESILATE [Suspect]
     Active Substance: LENVATINIB MESYLATE
     Indication: HEPATOCELLULAR CARCINOMA
     Dosage: 1 DOSAGE FORM, Q2H (EVERY 24 HOURS)
     Route: 048
     Dates: start: 20200525, end: 202009

REACTIONS (4)
  - Eastern Cooperative Oncology Group performance status worsened [Recovering/Resolving]
  - COVID-19 pneumonia [Recovering/Resolving]
  - Hypertension [Recovered/Resolved]
  - Dysphonia [Recovered/Resolved]

NARRATIVE: CASE EVENT DATE: 20200619
